FAERS Safety Report 18164024 (Version 1)
Quarter: 2020Q3

REPORT INFORMATION
  Report Type: Spontaneous
  Country: US (occurrence: US)
  Receive Date: 20200818
  Receipt Date: 20200818
  Transmission Date: 20201103
  Serious: No
  Sender: FDA-Public Use
  Company Number: US-BIOCODEX SA-202000942

PATIENT
  Sex: Female
  Weight: 46.27 kg

DRUGS (5)
  1. BRIVIACT [Concomitant]
     Active Substance: BRIVARACETAM
     Indication: PRODUCT USED FOR UNKNOWN INDICATION
     Route: 065
  2. BANZEL [Concomitant]
     Active Substance: RUFINAMIDE
     Indication: PRODUCT USED FOR UNKNOWN INDICATION
     Route: 065
  3. DIACOMIT [Suspect]
     Active Substance: STIRIPENTOL
     Indication: SEVERE MYOCLONIC EPILEPSY OF INFANCY
     Dosage: 250MG, THREE TIMES A DAY.
     Route: 065
     Dates: start: 20200617
  4. DIACOMIT [Suspect]
     Active Substance: STIRIPENTOL
     Dosage: 250MG AM, 250MG LUNCH, 500MG PM
     Route: 065
  5. KLONOPIN [Concomitant]
     Active Substance: CLONAZEPAM
     Indication: PRODUCT USED FOR UNKNOWN INDICATION
     Route: 065

REACTIONS (3)
  - Somnolence [Unknown]
  - Lethargy [Unknown]
  - Product use in unapproved indication [Unknown]
